FAERS Safety Report 19766679 (Version 1)
Quarter: 2021Q3

REPORT INFORMATION
  Report Type: Spontaneous
  Country: NL (occurrence: NL)
  Receive Date: 20210830
  Receipt Date: 20210830
  Transmission Date: 20211014
  Serious: Yes (Disabling)
  Sender: FDA-Public Use
  Company Number: None

PATIENT
  Age: 33 Year
  Sex: Female
  Weight: 53 kg

DRUGS (2)
  1. PROTOPIC [Suspect]
     Active Substance: TACROLIMUS
     Indication: ECZEMA
  2. MOMETASONE [Suspect]
     Active Substance: MOMETASONE

REACTIONS (6)
  - Skin wound [None]
  - Skin exfoliation [None]
  - Skin swelling [None]
  - Dry skin [None]
  - Rash erythematous [None]
  - Skin weeping [None]

NARRATIVE: CASE EVENT DATE: 20210720
